FAERS Safety Report 8808003 (Version 5)
Quarter: 2013Q4

REPORT INFORMATION
  Report Type: Report from Study
  Country: DE (occurrence: DE)
  Receive Date: 20120925
  Receipt Date: 20131121
  Transmission Date: 20140711
  Serious: Yes (Death, Hospitalization)
  Sender: FDA-Public Use
  Company Number: DE-JNJFOC-20120907553

PATIENT
  Age: 67 Year
  Sex: Male

DRUGS (7)
  1. SIMPONI [Suspect]
     Indication: PRODUCT USED FOR UNKNOWN INDICATION
     Route: 058
     Dates: start: 20110714
  2. SIMPONI [Suspect]
     Indication: PRODUCT USED FOR UNKNOWN INDICATION
     Route: 058
     Dates: start: 20101015
  3. SIMPONI [Suspect]
     Indication: PRODUCT USED FOR UNKNOWN INDICATION
     Route: 058
     Dates: start: 20120119, end: 201202
  4. SIMPONI [Suspect]
     Indication: PRODUCT USED FOR UNKNOWN INDICATION
     Route: 058
     Dates: start: 20100715
  5. SIMPONI [Suspect]
     Indication: PRODUCT USED FOR UNKNOWN INDICATION
     Route: 058
     Dates: start: 20110111
  6. RADIOTHERAPY [Suspect]
     Indication: OESOPHAGEAL ADENOCARCINOMA
     Route: 065
     Dates: start: 2012
  7. CARBOPLATIN [Suspect]
     Indication: OESOPHAGEAL ADENOCARCINOMA
     Route: 065
     Dates: start: 2012

REACTIONS (7)
  - Leukopenia [Fatal]
  - Infection [Fatal]
  - Oesophageal adenocarcinoma metastatic [Not Recovered/Not Resolved]
  - Oesophageal varices haemorrhage [Recovered/Resolved]
  - Hepatic cirrhosis [Recovered/Resolved]
  - Central venous catheterisation [Recovered/Resolved]
  - Psoriatic arthropathy [Unknown]
